FAERS Safety Report 11130801 (Version 1)
Quarter: 2015Q2

REPORT INFORMATION
  Report Type: Spontaneous
  Country: PL (occurrence: PL)
  Receive Date: 20150522
  Receipt Date: 20150522
  Transmission Date: 20150821
  Serious: Yes (Other)
  Sender: FDA-Public Use
  Company Number: PL-SUN PHARMACEUTICAL INDUSTRIES LTD-2015RR-97571

PATIENT
  Age: 48 Year
  Sex: Female

DRUGS (9)
  1. FENTANYL. [Suspect]
     Active Substance: FENTANYL
     Dosage: 100 G/H
     Route: 065
  2. BUPRENORFINE RANBAXY 35 MICROGRAM/UUR, PLEISTER VOOR TRANSDERMAAL GEBR [Suspect]
     Active Substance: BUPRENORPHINE
     Dosage: 105 UG/H
     Route: 062
     Dates: start: 201403
  3. FENTANYL. [Concomitant]
     Active Substance: FENTANYL
     Indication: PAIN
     Dosage: 600 ?G, TID
     Route: 048
     Dates: start: 2014
  4. FENTANYL. [Suspect]
     Active Substance: FENTANYL
     Dosage: 105 UG/H
     Route: 062
     Dates: start: 201403
  5. MORPHINE [Suspect]
     Active Substance: MORPHINE
     Indication: PAIN
     Dosage: 40 MG
     Route: 048
  6. OXYCODONE [Suspect]
     Active Substance: OXYCODONE
     Dosage: 80MG EVERY 12 HOURS
     Route: 065
  7. PREGABALIN. [Suspect]
     Active Substance: PREGABALIN
     Indication: PAIN
     Dosage: LOW DOSE
     Route: 065
  8. GABAPENTIN. [Suspect]
     Active Substance: GABAPENTIN
     Dosage: LOW DOSE
     Route: 065
  9. ACID ZOLEDRONIC [Suspect]
     Active Substance: ZOLEDRONIC ACID
     Indication: PAIN
     Dosage: UNK
     Route: 042

REACTIONS (9)
  - Somnolence [Recovering/Resolving]
  - Constipation [Recovering/Resolving]
  - Tachycardia [Recovering/Resolving]
  - Confusional state [Recovering/Resolving]
  - Diarrhoea [Recovering/Resolving]
  - Renal impairment [Recovered/Resolved]
  - Dyspnoea [Recovering/Resolving]
  - Vomiting [Recovering/Resolving]
  - Hypotension [Recovering/Resolving]
